FAERS Safety Report 19323050 (Version 3)
Quarter: 2022Q1

REPORT INFORMATION
  Report Type: Report from Study
  Country: JP (occurrence: JP)
  Receive Date: 20210528
  Receipt Date: 20220214
  Transmission Date: 20220423
  Serious: Yes (Other)
  Sender: FDA-Public Use
  Company Number: JP-RECORDATI RARE DISEASE INC.-2021001943

PATIENT
  Age: 0 Year
  Sex: Male
  Weight: 2.198 kg

DRUGS (11)
  1. NEOPROFEN [Suspect]
     Active Substance: IBUPROFEN LYSINE
     Indication: Patent ductus arteriosus
     Dosage: 20 MILLIGRAM, QD
     Route: 042
     Dates: start: 20191204, end: 20191204
  2. NEOPROFEN [Suspect]
     Active Substance: IBUPROFEN LYSINE
     Dosage: 10 MILLIGRAM, QD
     Route: 042
     Dates: start: 20191206, end: 20191206
  3. NEOPROFEN [Suspect]
     Active Substance: IBUPROFEN LYSINE
     Dosage: 10 MILLIGRAM, QD
     Route: 042
     Dates: start: 20191208, end: 20191208
  4. NEOPROFEN [Suspect]
     Active Substance: IBUPROFEN LYSINE
     Dosage: 20 MILLIGRAM, QD
     Route: 042
     Dates: start: 20191215, end: 20191215
  5. NEOPROFEN [Suspect]
     Active Substance: IBUPROFEN LYSINE
     Dosage: 12 MILLIGRAM, QD
     Route: 042
     Dates: start: 20191216, end: 20191216
  6. NEOPROFEN [Suspect]
     Active Substance: IBUPROFEN LYSINE
     Dosage: 12 MILLIGRAM, QD
     Route: 042
     Dates: start: 20191217, end: 20191217
  7. ANHYDROUS DEXTROSE [Concomitant]
     Active Substance: ANHYDROUS DEXTROSE
     Indication: Hypoglycaemia
     Dosage: UNK UNK, UNK
     Route: 042
     Dates: start: 20191203, end: 20191206
  8. SOLDEM 3AG [Concomitant]
     Indication: Nutritional supplementation
     Dosage: UNK UNK, UNK
     Route: 042
     Dates: start: 20191206, end: 20191212
  9. SODIUM CHLORIDE [Concomitant]
     Active Substance: SODIUM CHLORIDE
     Indication: Hyponatraemia
     Dosage: UNK UNK, UNK
     Route: 042
     Dates: start: 20191208, end: 20191211
  10. MIDAZOLAM [Concomitant]
     Active Substance: MIDAZOLAM
     Indication: Transient tachypnoea of the newborn
     Dosage: UNK UNK, UNK
     Route: 042
     Dates: start: 20191206, end: 20191210
  11. MENATETRENONE [Concomitant]
     Active Substance: MENATETRENONE
     Indication: Vitamin K deficiency
     Dosage: UNK UNK, UNK
     Route: 042
     Dates: start: 20191208, end: 20191208

REACTIONS (4)
  - Hyponatraemia [Recovered/Resolved]
  - Renal disorder [Recovered/Resolved]
  - Platelet count decreased [Recovered/Resolved]
  - Jaundice neonatal [Recovered/Resolved]

NARRATIVE: CASE EVENT DATE: 20191204
